FAERS Safety Report 9138794 (Version 1)
Quarter: 2013Q1

REPORT INFORMATION
  Report Type: Spontaneous
  Country: US (occurrence: None)
  Receive Date: 20130204
  Receipt Date: 20130204
  Transmission Date: 20140127
  Serious: Yes (Death)
  Sender: FDA-Public Use
  Company Number: NSR_00930_2013

PATIENT
  Age: 36 Year
  Sex: Male

DRUGS (7)
  1. TRAMADOL [Suspect]
     Indication: PRODUCT USED FOR UNKNOWN INDICATION
     Dosage: (DF)
     Route: 048
  2. MORPHINE [Suspect]
     Dosage: (DF)
     Route: 048
  3. RISPERIDONE [Suspect]
     Dosage: (DF)
     Route: 048
  4. QUETIAPINE [Suspect]
     Dosage: (DF)
     Route: 048
  5. MUSCLE RELAXANTS [Suspect]
     Dosage: (DF)
     Route: 048
  6. ALPRAZOLAM [Suspect]
     Dosage: (DF)
     Route: 048
  7. HYDROMORPHONE [Suspect]
     Dosage: (DF)
     Route: 048

REACTIONS (1)
  - Poisoning [None]
